FAERS Safety Report 6823579-9 (Version None)
Quarter: 2010Q3

REPORT INFORMATION
  Report Type: 
  Country: None (occurrence: None)
  Receive Date: 20100708
  Receipt Date: 20060814
  Transmission Date: 20110219
  Serious: No
  Sender: FDA-Public Use
  Company Number: US-PFIZER INC-2006103929

PATIENT

DRUGS (1)
  1. CHANTIX [Suspect]
     Indication: EX-TOBACCO USER

REACTIONS (5)
  - ABDOMINAL DISCOMFORT [None]
  - DYSGEUSIA [None]
  - FEELING ABNORMAL [None]
  - PHOTOSENSITIVITY REACTION [None]
  - VOMITING [None]
